FAERS Safety Report 5088004-X (Version None)
Quarter: 2006Q3

REPORT INFORMATION
  Report Type: 
  Country: None (occurrence: None)
  Receive Date: 20060823
  Receipt Date: 20060823
  Transmission Date: 20061208
  Serious: Yes (Hospitalization)
  Sender: FDA-Public Use
  Company Number: None

PATIENT
  Age: 84 Year
  Sex: Female
  Weight: 63 kg

DRUGS (8)
  1. FLEET'S PHOSPHOSODA [Suspect]
     Indication: PREOPERATIVE CARE
     Dosage: SEE IMAGE
     Dates: start: 20060515
  2. LISINOPRIL [Concomitant]
  3. ASPIRIN [Concomitant]
  4. METOPROLOL TARTRATE [Concomitant]
  5. PEPCID [Concomitant]
  6. COUMADIN [Concomitant]
  7. ZOCOR [Concomitant]
  8. ARICEPT [Concomitant]

REACTIONS (4)
  - DEHYDRATION [None]
  - HYPOTENSION [None]
  - RENAL FAILURE ACUTE [None]
  - URINE OUTPUT DECREASED [None]
